FAERS Safety Report 6668723-1 (Version None)
Quarter: 2010Q2

REPORT INFORMATION
  Report Type: 
  Country: None (occurrence: None)
  Receive Date: 20100406
  Receipt Date: 20100329
  Transmission Date: 20101027
  Serious: Yes (Death, Hospitalization)
  Sender: FDA-Public Use
  Company Number: ES-SANOFI-AVENTIS-2010SA018512

PATIENT
  Age: 86 Year
  Sex: Male

DRUGS (2)
  1. CLEXANE SYRINGES [Suspect]
     Route: 058
     Dates: start: 20090212, end: 20090303
  2. SINTROM [Suspect]
     Route: 048
     Dates: start: 20090212, end: 20090226

REACTIONS (3)
  - DEEP VEIN THROMBOSIS [None]
  - HAEMOPTYSIS [None]
  - THROMBOCYTOPENIA [None]
